FAERS Safety Report 8520484-7 (Version None)
Quarter: 2012Q3

REPORT INFORMATION
  Report Type: 
  Country: None (occurrence: None)
  Receive Date: 20120719
  Receipt Date: 20120709
  Transmission Date: 20120928
  Serious: Yes (Other)
  Sender: FDA-Public Use
  Company Number: US-BRISTOL-MYERS SQUIBB COMPANY-16754236

PATIENT
  Age: 54 Year
  Sex: Male
  Weight: 102 kg

DRUGS (1)
  1. AVALIDE [Suspect]
     Indication: BLOOD PRESSURE
     Dosage: 1DF = 300/12.5 MG

REACTIONS (9)
  - LOWER LIMB FRACTURE [None]
  - ARTHROPATHY [None]
  - FALL [None]
  - CARPAL TUNNEL SYNDROME [None]
  - CYST [None]
  - LOSS OF CONSCIOUSNESS [None]
  - OSTEONECROSIS [None]
  - FOOT FRACTURE [None]
  - PROSTATIC DISORDER [None]
